FAERS Safety Report 10720181 (Version 1)
Quarter: 2015Q1

REPORT INFORMATION
  Report Type: Spontaneous
  Country: US (occurrence: US)
  Receive Date: 20150119
  Receipt Date: 20150119
  Transmission Date: 20150721
  Serious: No
  Sender: FDA-Public Use
  Company Number: US-UNITED THERAPEUTICS-UNT-2014-007119

PATIENT
  Age: 53 Year
  Sex: Male
  Weight: 75.74 kg

DRUGS (2)
  1. ORENITRAM [Suspect]
     Active Substance: TREPROSTINIL
     Dosage: 1 MG (AM AND PM), BID
     Route: 048
     Dates: start: 20140820
  2. ORENITRAM [Suspect]
     Active Substance: TREPROSTINIL
     Indication: COR PULMONALE CHRONIC
     Dosage: 0.125 MG (MIDDAY), QD
     Route: 048
     Dates: start: 20140820

REACTIONS (4)
  - Abdominal discomfort [Unknown]
  - Drug dose omission [Unknown]
  - Diarrhoea [Unknown]
  - Nausea [Unknown]

NARRATIVE: CASE EVENT DATE: 2014
